FAERS Safety Report 21264635 (Version 2)
Quarter: 2022Q3

REPORT INFORMATION
  Report Type: Other
  Country: VN (occurrence: None)
  Receive Date: 20220829
  Receipt Date: 20220921
  Transmission Date: 20221027
  Serious: Yes (Hospitalization)
  Sender: FDA-Public Use
  Company Number: VN-ROCHE-3168617

PATIENT
  Age: 58 Month
  Sex: Female

DRUGS (15)
  1. RITUXIMAB [Suspect]
     Active Substance: RITUXIMAB
     Indication: Encephalitis autoimmune
     Route: 042
     Dates: start: 20180924, end: 20181024
  2. CELLCEPT [Suspect]
     Active Substance: MYCOPHENOLATE MOFETIL
     Indication: Encephalitis autoimmune
     Route: 065
     Dates: start: 20180911
  3. CELLCEPT [Suspect]
     Active Substance: MYCOPHENOLATE MOFETIL
     Route: 048
     Dates: start: 20181227
  4. TOCILIZUMAB [Suspect]
     Active Substance: TOCILIZUMAB
     Indication: Encephalitis autoimmune
     Route: 042
     Dates: start: 20181228, end: 20190129
  5. TOPAMAX [Suspect]
     Active Substance: TOPIRAMATE
     Indication: Encephalitis autoimmune
     Route: 048
     Dates: start: 20180912
  6. TOPAMAX [Suspect]
     Active Substance: TOPIRAMATE
     Dosage: AFTER 10 DAYS
     Route: 048
     Dates: end: 20181226
  7. RISPERIDONE [Suspect]
     Active Substance: RISPERIDONE
     Indication: Encephalitis autoimmune
     Route: 048
     Dates: start: 20180822, end: 20200105
  8. RISPERIDONE [Suspect]
     Active Substance: RISPERIDONE
     Route: 048
  9. KEPPRA [Suspect]
     Active Substance: LEVETIRACETAM
     Indication: Encephalitis autoimmune
     Route: 048
     Dates: start: 20181227, end: 20200105
  10. SOLU-MEDROL [Suspect]
     Active Substance: METHYLPREDNISOLONE SODIUM SUCCINATE
     Indication: Encephalitis autoimmune
     Route: 042
     Dates: start: 20180822, end: 20180826
  11. PREDNISOLONE [Suspect]
     Active Substance: PREDNISOLONE
     Indication: Encephalitis autoimmune
     Route: 048
     Dates: start: 20180827
  12. PREDNISOLONE [Suspect]
     Active Substance: PREDNISOLONE
     Route: 048
     Dates: end: 20180911
  13. VALPROATE SODIUM [Suspect]
     Active Substance: VALPROATE SODIUM
     Indication: Encephalitis autoimmune
     Route: 048
     Dates: start: 20180822
  14. VALPROATE SODIUM [Suspect]
     Active Substance: VALPROATE SODIUM
     Route: 048
     Dates: end: 20180920
  15. PIRACETAM [Concomitant]
     Active Substance: PIRACETAM
     Route: 048
     Dates: start: 20181023, end: 20200105

REACTIONS (2)
  - Muscle spasticity [Recovering/Resolving]
  - Treatment failure [Unknown]
